FAERS Safety Report 14014576 (Version 1)
Quarter: 2017Q3

REPORT INFORMATION
  Report Type: Report from Study
  Country: None (occurrence: US)
  Receive Date: 20170927
  Receipt Date: 20170927
  Transmission Date: 20171128
  Serious: Yes (Other)
  Sender: FDA-Public Use
  Company Number: US-ABBVIE-17K-163-2109911-00

PATIENT
  Sex: Female

DRUGS (3)
  1. SULFASALAZINE. [Concomitant]
     Active Substance: SULFASALAZINE
     Indication: PRODUCT USED FOR UNKNOWN INDICATION
  2. HUMIRA [Suspect]
     Active Substance: ADALIMUMAB
     Route: 058
     Dates: end: 201704
  3. HUMIRA [Suspect]
     Active Substance: ADALIMUMAB
     Indication: COLITIS ULCERATIVE
     Route: 058
     Dates: start: 2014

REACTIONS (16)
  - Breast neoplasm [Unknown]
  - Lymphoma [Unknown]
  - Dermal cyst [Unknown]
  - Uterine cyst [Unknown]
  - Breast cyst [Unknown]
  - Nasal neoplasm [Unknown]
  - Neoplasm [Unknown]
  - Mental impairment [Unknown]
  - Cyst [Unknown]
  - Sinus polyp [Unknown]
  - Uterine neoplasm [Unknown]
  - Nasal cyst [Unknown]
  - Hepatic cyst [Unknown]
  - Drug ineffective [Unknown]
  - Neoplasm skin [Unknown]
  - Hepatic neoplasm [Unknown]
